FAERS Safety Report 18766362 (Version 3)
Quarter: 2021Q1

REPORT INFORMATION
  Report Type: Spontaneous
  Country: SK (occurrence: SK)
  Receive Date: 20210121
  Receipt Date: 20210329
  Transmission Date: 20210419
  Serious: Yes (Death)
  Sender: FDA-Public Use
  Company Number: SK-ROCHE-2752764

PATIENT
  Sex: Female
  Weight: 80 kg

DRUGS (17)
  1. TOCILIZUMAB. [Suspect]
     Active Substance: TOCILIZUMAB
     Indication: CYTOKINE STORM
  2. IBUPROFEN. [Concomitant]
     Active Substance: IBUPROFEN
  3. DEXAMETHASONE. [Concomitant]
     Active Substance: DEXAMETHASONE
     Route: 042
  4. POLYOXIDONIUM [Concomitant]
     Dosage: 6 MG I..M. 1X DAILY 5X
     Route: 030
  5. METOPROLOL. [Concomitant]
     Active Substance: METOPROLOL
     Dosage: METOPROLOL 100 MG TBL 1?0?0
  6. FRAXIPARINE [Concomitant]
     Active Substance: NADROPARIN CALCIUM
     Dosage: 6 ML A 24 HOURS SC.
     Route: 058
  7. ISOPRINOSINE [Concomitant]
     Active Substance: INOSINE PRANOBEX
     Dosage: 500 MG TBL 3X2
  8. ASA [Concomitant]
     Active Substance: ASPIRIN
     Dosage: 100 MG TBL R
  9. METAMIZOLE [Concomitant]
     Active Substance: METAMIZOLE
     Dosage: 1G A 8 HOURS I.V.
     Route: 042
  10. ATORVASTATIN [Concomitant]
     Active Substance: ATORVASTATIN
     Dosage: ATORVASTATIN 10 MG TBL V
  11. TOCILIZUMAB. [Suspect]
     Active Substance: TOCILIZUMAB
     Indication: COVID-19
     Route: 042
     Dates: start: 20201104, end: 20201104
  12. CEFUROXIME. [Concomitant]
     Active Substance: CEFUROXIME
  13. FUROSEMIDE. [Concomitant]
     Active Substance: FUROSEMIDE
     Route: 042
  14. MANITIMUS. [Concomitant]
     Active Substance: MANITIMUS
  15. PANTOPRAZOLE [Concomitant]
     Active Substance: PANTOPRAZOLE
     Dosage: PANTOPRAZOLE 20 MG TBL 1?0?1
  16. PERINDOPRIL [Concomitant]
     Active Substance: PERINDOPRIL
     Dosage: 5 MG TBL 1?0?0
  17. BROMAZEPAM [Concomitant]
     Active Substance: BROMAZEPAM
     Dosage: 1,5 MG TBL 3X1
     Route: 065

REACTIONS (6)
  - Death [Fatal]
  - General physical health deterioration [Fatal]
  - Off label use [Unknown]
  - Hyperpyrexia [Fatal]
  - Cytokine storm [Fatal]
  - Sopor [Fatal]
